FAERS Safety Report 19381613 (Version 1)
Quarter: 2021Q2

REPORT INFORMATION
  Report Type: Spontaneous
  Country: US (occurrence: US)
  Receive Date: 20210607
  Receipt Date: 20210607
  Transmission Date: 20210717
  Serious: Yes (Hospitalization, Other)
  Sender: FDA-Public Use
  Company Number: US-BAYER-2021-153642

PATIENT
  Age: 46 Year
  Sex: Male

DRUGS (1)
  1. PARACETAMOL [Suspect]
     Active Substance: ACETAMINOPHEN
     Dosage: REPEATED SUPRATHERAPEUTIC INGESTION (RSTI)
     Route: 048

REACTIONS (4)
  - Intentional overdose [Recovering/Resolving]
  - Alanine aminotransferase increased [Recovering/Resolving]
  - Multiple organ dysfunction syndrome [Recovering/Resolving]
  - Hypotension [Recovering/Resolving]
